FAERS Safety Report 7862488-3 (Version None)
Quarter: 2011Q4

REPORT INFORMATION
  Report Type: 
  Country: None (occurrence: None)
  Receive Date: 20111027
  Receipt Date: 20101103
  Transmission Date: 20120403
  Serious: No
  Sender: FDA-Public Use
  Company Number: US-AMGEN-TCS397315

PATIENT
  Age: 59 Year
  Sex: Female

DRUGS (4)
  1. FLUVAX [Concomitant]
  2. PLAQUENIL [Concomitant]
     Dosage: 200 MG, BID
     Route: 048
  3. ENBREL [Suspect]
     Indication: RHEUMATOID ARTHRITIS
     Dosage: 50 MG, QWK
     Route: 058
     Dates: start: 20100301
  4. METHOTREXATE [Concomitant]
     Dosage: 10 MG, QWK
     Route: 048

REACTIONS (3)
  - STRESS [None]
  - DIARRHOEA [None]
  - RASH PRURITIC [None]
